FAERS Safety Report 8474396 (Version 5)
Quarter: 2012Q4

REPORT INFORMATION
  Report Type: Spontaneous
  Country: JP (occurrence: None)
  Receive Date: 20120315
  Receipt Date: 20121128
  Transmission Date: 20130627
  Serious: Yes (Death, Hospitalization)
  Sender: FDA-Public Use
  Company Number: TCI2012A01145

PATIENT
  Age: 70 Year
  Sex: Male

DRUGS (7)
  1. TAKEPRON OD (LANSOPRAZOLE) [Suspect]
     Dosage: 1 CARD (0.5 CAR-2 IN 1 D) PER ORAL
     Route: 048
     Dates: start: 20120221, end: 20120222
  2. TAKEPRON OD (LANSOPRAZOLE) [Suspect]
     Route: 048
     Dates: start: 20120301, end: 20120304
  3. LANSAP [Suspect]
     Indication: HELICOBACTER PYLORI PROPHYLAXIS
     Dosage: 1 Card (0.5 Card, 2 in 1 D) Per oral
     Dates: start: 20120223, end: 20120229
  4. LANSAP [Suspect]
     Indication: HELICOBACTER PYLORI PROPHYLAXIS
  5. FERROMIA (FERROUS SODIUM CITRATE) [Concomitant]
  6. MIYA-BM [Concomitant]
  7. LOPERAMIDE HYDROCHLORIDE [Concomitant]

REACTIONS (7)
  - Agranulocytosis [None]
  - Diarrhoea [None]
  - Aspartate aminotransferase increased [None]
  - Alanine aminotransferase increased [None]
  - Cardio-respiratory arrest [None]
  - Disseminated intravascular coagulation [None]
  - Renal failure [None]
